FAERS Safety Report 6577256-2 (Version None)
Quarter: 2010Q1

REPORT INFORMATION
  Report Type: 
  Country: None (occurrence: None)
  Receive Date: 20100210
  Receipt Date: 20100202
  Transmission Date: 20100710
  Serious: Yes (Hospitalization, Other)
  Sender: FDA-Public Use
  Company Number: US-PFIZER INC-2010014163

PATIENT
  Sex: Female

DRUGS (6)
  1. LYRICA [Suspect]
     Indication: FIBROMYALGIA
     Dosage: 50 MG, 2X/DAY
     Route: 048
     Dates: start: 20090301
  2. MILNACIPRAN [Suspect]
     Indication: FIBROMYALGIA
     Dosage: 50 MG, 2X/DAY
     Route: 048
     Dates: start: 20090901
  3. IMITREX [Suspect]
  4. ENTOCORT EC [Concomitant]
     Dosage: 3 MG, 3X/DAY
  5. RITALIN [Concomitant]
     Dosage: 20 MG, 2X/DAY
  6. SOMA [Concomitant]
     Dosage: UNK, AS NEEDED

REACTIONS (16)
  - AGITATION [None]
  - ARTHRALGIA [None]
  - CONFUSIONAL STATE [None]
  - DIARRHOEA [None]
  - ERYTHEMA [None]
  - HYPERACUSIS [None]
  - JOINT SWELLING [None]
  - MIGRAINE [None]
  - NAUSEA [None]
  - OEDEMA PERIPHERAL [None]
  - OROPHARYNGEAL PAIN [None]
  - PAIN [None]
  - PAIN IN EXTREMITY [None]
  - PHOTOPHOBIA [None]
  - SKIN CHAPPED [None]
  - VOMITING [None]
